FAERS Safety Report 13776215 (Version 2)
Quarter: 2017Q3

REPORT INFORMATION
  Report Type: Spontaneous
  Country: US (occurrence: US)
  Receive Date: 20170721
  Receipt Date: 20170911
  Transmission Date: 20171127
  Serious: Yes (Death, Other)
  Sender: FDA-Public Use
  Company Number: US-ASTELLAS-2017US028949

PATIENT
  Age: 68 Year
  Sex: Female

DRUGS (1)
  1. ADVAGRAF [Suspect]
     Active Substance: TACROLIMUS
     Indication: PRODUCT USED FOR UNKNOWN INDICATION
     Dosage: UNK, UNKNOWN FREQ.
     Route: 065
     Dates: start: 2004

REACTIONS (4)
  - Gastric ulcer, obstructive [Unknown]
  - Gastrointestinal obstruction [Unknown]
  - Glucose tolerance impaired [Unknown]
  - Death [Fatal]

NARRATIVE: CASE EVENT DATE: 20170625
